FAERS Safety Report 9185953 (Version 1)
Quarter: 2013Q1

REPORT INFORMATION
  Report Type: Spontaneous
  Country: US (occurrence: US)
  Receive Date: 20130325
  Receipt Date: 20130325
  Transmission Date: 20140127
  Serious: Yes (Hospitalization)
  Sender: FDA-Public Use
  Company Number: US-ELI_LILLY_AND_COMPANY-US201206005475

PATIENT
  Age: 68 Year
  Sex: Female

DRUGS (15)
  1. FORTEO [Suspect]
     Indication: OSTEOPOROSIS
     Dosage: 20 UG, QD
     Route: 065
     Dates: start: 201203
  2. FORTEO [Suspect]
     Dosage: 20 UG, QD
     Route: 065
  3. TOPROL [Concomitant]
  4. METOPROLOL [Concomitant]
  5. TRAZODONE [Concomitant]
  6. PLAVIX [Concomitant]
  7. LUNESTA [Concomitant]
  8. FLEXERIL [Concomitant]
  9. PROMETHAZINE [Concomitant]
  10. NORVASC [Concomitant]
  11. KLOR-CON [Concomitant]
  12. FLUOXETINE [Concomitant]
  13. NEXIUM [Concomitant]
  14. B12 [Concomitant]
  15. CYMBALTA [Concomitant]

REACTIONS (9)
  - Hip fracture [Unknown]
  - Fall [Unknown]
  - Rib fracture [Unknown]
  - Head injury [Unknown]
  - Fall [Unknown]
  - Fall [Not Recovered/Not Resolved]
  - Headache [Unknown]
  - Nausea [Unknown]
  - Malaise [Unknown]
